FAERS Safety Report 12771552 (Version 1)
Quarter: 2016Q3

REPORT INFORMATION
  Report Type: Spontaneous
  Country: US (occurrence: US)
  Receive Date: 20160920
  Receipt Date: 20160920
  Transmission Date: 20161109
  Serious: No
  Sender: FDA-Public Use
  Company Number: None

PATIENT
  Age: 44 Year
  Sex: Female

DRUGS (5)
  1. PANTOPRAZOLE [Concomitant]
     Active Substance: PANTOPRAZOLE SODIUM
  2. ONDANSETRON [Concomitant]
     Active Substance: ONDANSETRON
  3. OXYCONTIN [Concomitant]
     Active Substance: OXYCODONE HYDROCHLORIDE
  4. IBRANCE [Suspect]
     Active Substance: PALBOCICLIB
     Indication: NEOPLASM MALIGNANT
     Route: 048
     Dates: start: 201607
  5. LYRICA [Concomitant]
     Active Substance: PREGABALIN

REACTIONS (3)
  - Diarrhoea [None]
  - White blood cell count decreased [None]
  - Therapy change [None]

NARRATIVE: CASE EVENT DATE: 201609
